FAERS Safety Report 7757486-4 (Version None)
Quarter: 2011Q3

REPORT INFORMATION
  Report Type: 
  Country: None (occurrence: None)
  Receive Date: 20110916
  Receipt Date: 20110908
  Transmission Date: 20111222
  Serious: Yes (Hospitalization, Other)
  Sender: FDA-Public Use
  Company Number: DE-TEVA-300853GER

PATIENT
  Sex: Male

DRUGS (1)
  1. COPAXONE [Suspect]
     Indication: MULTIPLE SCLEROSIS
     Dates: start: 20100201, end: 20110830

REACTIONS (7)
  - DIZZINESS [None]
  - ORAL HERPES [None]
  - VENTRICULAR TACHYCARDIA [None]
  - SYNCOPE [None]
  - NASOPHARYNGITIS [None]
  - URINARY INCONTINENCE [None]
  - HYPERHIDROSIS [None]
